FAERS Safety Report 22108301 (Version 1)
Quarter: 2023Q1

REPORT INFORMATION
  Report Type: Spontaneous
  Country: US (occurrence: None)
  Receive Date: 20230316
  Receipt Date: 20230316
  Transmission Date: 20230418
  Serious: Yes (Other)
  Sender: FDA-Public Use
  Company Number: None

PATIENT
  Age: 35 Year
  Sex: Female
  Weight: 95.6 kg

DRUGS (2)
  1. PAXLOVID [Suspect]
     Active Substance: NIRMATRELVIR\RITONAVIR
     Indication: COVID-19
     Dosage: FREQUENCY : DAILY;?
     Route: 048
     Dates: start: 20230109, end: 20230110
  2. TACROLIMUS [Concomitant]
     Active Substance: TACROLIMUS
     Dates: start: 20220413

REACTIONS (3)
  - Renal transplant [None]
  - Drug interaction [None]
  - Product prescribing issue [None]

NARRATIVE: CASE EVENT DATE: 20230110
